FAERS Safety Report 19778466 (Version 1)
Quarter: 2021Q3

REPORT INFORMATION
  Report Type: Report from Study
  Country: CA (occurrence: CA)
  Receive Date: 20210902
  Receipt Date: 20210902
  Transmission Date: 20211014
  Serious: Yes (Other)
  Sender: FDA-Public Use
  Company Number: PHHY2016CA007070

PATIENT
  Age: 60 Year
  Sex: Female

DRUGS (8)
  1. ZOPICLONE [Concomitant]
     Active Substance: ZOPICLONE
     Indication: PRODUCT USED FOR UNKNOWN INDICATION
     Dosage: UNK
     Route: 065
  2. VITAMIIN C [Concomitant]
     Active Substance: ASCORBIC ACID
     Indication: PRODUCT USED FOR UNKNOWN INDICATION
     Route: 065
  3. TASIGNA [Suspect]
     Active Substance: NILOTINIB
     Indication: CHRONIC MYELOID LEUKAEMIA
     Dosage: 300 MG, BID
     Route: 048
     Dates: start: 20160107
  4. TASIGNA [Suspect]
     Active Substance: NILOTINIB
     Dosage: 150 MG, BID
     Route: 048
  5. TASIGNA [Suspect]
     Active Substance: NILOTINIB
     Dosage: 300 MG, QD (DOSE REDUCED FROM 600 MG BID TO 300 MG QD)
     Route: 048
  6. CALCIUM [Concomitant]
     Active Substance: CALCIUM
     Indication: PRODUCT USED FOR UNKNOWN INDICATION
     Route: 065
  7. TASIGNA [Suspect]
     Active Substance: NILOTINIB
     Dosage: 300 MG, QD
     Route: 065
  8. BABY ASPIRIN [Concomitant]
     Active Substance: ASPIRIN
     Indication: PRODUCT USED FOR UNKNOWN INDICATION
     Dosage: UNK
     Route: 065

REACTIONS (29)
  - Chest pain [Unknown]
  - Back pain [Recovered/Resolved]
  - Pruritus [Unknown]
  - Dysstasia [Unknown]
  - Acne [Unknown]
  - Skin papilloma [Unknown]
  - Limb injury [Unknown]
  - Headache [Recovering/Resolving]
  - Arthralgia [Unknown]
  - Anxiety [Unknown]
  - Skin injury [Unknown]
  - Vulvovaginal dryness [Unknown]
  - Emotional disorder [Unknown]
  - Dyspnoea exertional [Unknown]
  - Loss of consciousness [Unknown]
  - Vaginal discharge [Unknown]
  - Chromaturia [Unknown]
  - Nasopharyngitis [Unknown]
  - Madarosis [Unknown]
  - Insomnia [Unknown]
  - Bone pain [Unknown]
  - Bone pain [Recovered/Resolved]
  - Fatigue [Not Recovered/Not Resolved]
  - Cough [Unknown]
  - Stress [Unknown]
  - Dry skin [Unknown]
  - Rash [Recovered/Resolved]
  - Erythema [Unknown]
  - Asthenia [Not Recovered/Not Resolved]

NARRATIVE: CASE EVENT DATE: 201602
